FAERS Safety Report 15149093 (Version 2)
Quarter: 2018Q3

REPORT INFORMATION
  Report Type: Spontaneous
  Country: SI (occurrence: SI)
  Receive Date: 20180716
  Receipt Date: 20180801
  Transmission Date: 20181010
  Serious: Yes (Other)
  Sender: FDA-Public Use
  Company Number: SI-JNJFOC-20180717625

PATIENT
  Sex: Male

DRUGS (6)
  1. LASIX [Concomitant]
     Active Substance: FUROSEMIDE
     Route: 065
  2. ROSUVASTATIN CALCIUM. [Concomitant]
     Active Substance: ROSUVASTATIN CALCIUM
     Route: 065
  3. NEBILET [Concomitant]
     Active Substance: NEBIVOLOL
     Route: 065
  4. LOPERAMIDE HYDROCHLORIDE. [Concomitant]
     Active Substance: LOPERAMIDE HYDROCHLORIDE
     Route: 065
  5. XARELTO [Suspect]
     Active Substance: RIVAROXABAN
     Indication: ATRIAL FIBRILLATION
     Route: 048
  6. AVODART [Concomitant]
     Active Substance: DUTASTERIDE
     Route: 065

REACTIONS (1)
  - Splenic rupture [Recovered/Resolved]
